FAERS Safety Report 5856700-X (Version None)
Quarter: 2008Q3

REPORT INFORMATION
  Report Type: 
  Country: None (occurrence: None)
  Receive Date: 20080825
  Receipt Date: 20080814
  Transmission Date: 20090109
  Serious: Yes (Hospitalization)
  Sender: FDA-Public Use
  Company Number: DE-AVENTIS-200814381EU

PATIENT
  Age: 77 Year
  Sex: Male
  Weight: 81.5 kg

DRUGS (7)
  1. NITROGLYCERIN [Suspect]
     Dosage: DOSE: UNK
     Route: 060
     Dates: start: 20080606, end: 20080619
  2. ASPIRIN [Concomitant]
     Indication: DRUG USE FOR UNKNOWN INDICATION
     Route: 048
     Dates: start: 20070102
  3. BISOPROLOL FUMARATE [Concomitant]
     Route: 048
     Dates: start: 19970908
  4. GLICLAZIDE [Concomitant]
     Indication: DIABETES MELLITUS
     Route: 048
     Dates: start: 20030812
  5. METFORMIN [Concomitant]
     Indication: DIABETES MELLITUS
     Route: 048
     Dates: start: 20060103
  6. NICORANDIL [Concomitant]
     Indication: DRUG USE FOR UNKNOWN INDICATION
     Route: 048
     Dates: start: 19971111
  7. SIMVASTATIN [Concomitant]
     Dates: start: 19991011

REACTIONS (3)
  - HYPERHIDROSIS [None]
  - NAUSEA [None]
  - SYNCOPE [None]
